FAERS Safety Report 22933014 (Version 3)
Quarter: 2023Q4

REPORT INFORMATION
  Report Type: Other
  Country: US (occurrence: None)
  Receive Date: 20230912
  Receipt Date: 20231107
  Transmission Date: 20240109
  Serious: Yes (Hospitalization, Other)
  Sender: FDA-Public Use
  Company Number: US-ROCHE-3398629

PATIENT
  Age: 42 Year
  Sex: Male
  Weight: 73.6 kg

DRUGS (17)
  1. GLOFITAMAB [Suspect]
     Active Substance: GLOFITAMAB
     Indication: Burkitt^s lymphoma
     Dosage: ON 31/JUL/2023, MOST RECENT DOSE OF STUDY DRUG
     Route: 042
     Dates: start: 20230624
  2. GLOFITAMAB [Suspect]
     Active Substance: GLOFITAMAB
     Dosage: ON 30/JUN/2023, (C1D15) RECEIVED RECENT DOSE OF STUDY DRUG.
     Route: 042
  3. GLOFITAMAB [Suspect]
     Active Substance: GLOFITAMAB
     Dosage: ON 06/JUL/2023, (C2D1) RECEIVED RECENT DOSE OF STUDY DRUG.?ON 31/JUL/2023, (C3D1) RECEIVED RECENT DO
     Route: 042
     Dates: end: 20230731
  4. OBINUTUZUMAB [Suspect]
     Active Substance: OBINUTUZUMAB
     Indication: Burkitt^s lymphoma
     Route: 042
     Dates: start: 20230615, end: 20230615
  5. TOCILIZUMAB [Suspect]
     Active Substance: TOCILIZUMAB
     Indication: Cytokine release syndrome
     Route: 065
  6. ALLOPURINOL [Concomitant]
     Active Substance: ALLOPURINOL
     Route: 048
  7. AMLODIPINE [Concomitant]
     Active Substance: AMLODIPINE BESYLATE
     Route: 048
  8. FENTANYL [Concomitant]
     Active Substance: FENTANYL\FENTANYL CITRATE
  9. LEVAQUIN [Concomitant]
     Active Substance: LEVOFLOXACIN
  10. OMEPRAZOLE [Concomitant]
     Active Substance: OMEPRAZOLE
  11. ZOFRAN [Concomitant]
     Active Substance: ONDANSETRON HYDROCHLORIDE
  12. POLYETHYLENE GLYCOL [Concomitant]
     Active Substance: POLYETHYLENE GLYCOL
  13. SIROLIMUS [Concomitant]
     Active Substance: SIROLIMUS
  14. BACTRIM DS [Concomitant]
     Active Substance: SULFAMETHOXAZOLE\TRIMETHOPRIM
  15. TACROLIMUS [Concomitant]
     Active Substance: TACROLIMUS
  16. VALACYCLOVIR [Concomitant]
     Active Substance: VALACYCLOVIR HYDROCHLORIDE
  17. VANCOMYCIN [Concomitant]
     Active Substance: VANCOMYCIN

REACTIONS (9)
  - Dyspnoea [Not Recovered/Not Resolved]
  - Decreased appetite [Not Recovered/Not Resolved]
  - Back pain [Not Recovered/Not Resolved]
  - Pleural effusion [Not Recovered/Not Resolved]
  - Neutropenia [Unknown]
  - Cytokine release syndrome [Unknown]
  - Tachypnoea [Unknown]
  - Hypoxia [Unknown]
  - Therapy non-responder [Unknown]

NARRATIVE: CASE EVENT DATE: 20230630
